FAERS Safety Report 20573914 (Version 1)
Quarter: 2022Q1

REPORT INFORMATION
  Report Type: Report from Study
  Country: AU (occurrence: AU)
  Receive Date: 20220309
  Receipt Date: 20220309
  Transmission Date: 20220424
  Serious: Yes (Other)
  Sender: FDA-Public Use
  Company Number: AU-KOREA IPSEN Pharma-2022-04251

PATIENT
  Age: 73 Year
  Sex: Male
  Weight: 68 kg

DRUGS (2)
  1. LANREOTIDE ACETATE [Suspect]
     Active Substance: LANREOTIDE ACETATE
     Indication: Product used for unknown indication
     Dosage: 120 MG
     Route: 058
     Dates: end: 20220217
  2. LANREOTIDE ACETATE [Suspect]
     Active Substance: LANREOTIDE ACETATE
     Dosage: 120 MG
     Route: 058
     Dates: start: 20220303

REACTIONS (4)
  - Solar lentigo [Unknown]
  - Blood chromogranin A increased [Unknown]
  - Off label use [Unknown]
  - Off label use [Unknown]

NARRATIVE: CASE EVENT DATE: 20220201
